FAERS Safety Report 8797608 (Version 1)
Quarter: 2012Q4

REPORT INFORMATION
  Report Type: Spontaneous
  Country: US (occurrence: None)
  Receive Date: 20120914
  Receipt Date: 20120914
  Transmission Date: 20130627
  Serious: Yes (Other)
  Sender: FDA-Public Use
  Company Number: None

PATIENT
  Age: 71 None
  Sex: Female

DRUGS (2)
  1. VANCOMYCIN [Suspect]
     Indication: PNEUMONIA
     Route: 042
     Dates: start: 20120816, end: 20120827
  2. VANCOMYCIN [Suspect]

REACTIONS (1)
  - Renal failure [None]
